FAERS Safety Report 9849907 (Version 1)
Quarter: 2013Q4

REPORT INFORMATION
  Report Type: Spontaneous
  Country: US (occurrence: None)
  Receive Date: 20131226
  Receipt Date: 20131226
  Transmission Date: 20140711
  Serious: Yes (Hospitalization, Other)
  Sender: FDA-Public Use
  Company Number: PHEH2012US020131

PATIENT
  Sex: Female

DRUGS (1)
  1. AFINITOR ( RAD) UNKNOWN [Suspect]
     Indication: BREAST CANCER
     Route: 048
     Dates: start: 20120909, end: 20121008

REACTIONS (7)
  - Lung infiltration [None]
  - Body temperature increased [None]
  - Diarrhoea [None]
  - Fatigue [None]
  - Nausea [None]
  - Vomiting [None]
  - Blood creatinine increased [None]
